FAERS Safety Report 6236965-5 (Version None)
Quarter: 2009Q2

REPORT INFORMATION
  Report Type: 
  Country: None (occurrence: None)
  Receive Date: 20090619
  Receipt Date: 20090407
  Transmission Date: 20091009
  Serious: No
  Sender: FDA-Public Use
  Company Number: US-ASTRAZENECA-2009UW05650

PATIENT
  Sex: Male

DRUGS (6)
  1. SYMBICORT [Suspect]
     Indication: CHRONIC OBSTRUCTIVE PULMONARY DISEASE
     Dosage: 160 UG 2 PUFFS
     Route: 055
  2. SYMBICORT [Suspect]
     Indication: ASTHMA
     Dosage: 160 UG 2 PUFFS
     Route: 055
  3. SYMBICORT [Suspect]
     Indication: BRONCHITIS CHRONIC
     Dosage: 160 UG 2 PUFFS
     Route: 055
  4. COMBIVENT [Concomitant]
     Indication: CHRONIC OBSTRUCTIVE PULMONARY DISEASE
     Route: 055
  5. COMBIVENT [Concomitant]
     Indication: ASTHMA
     Route: 055
  6. COMBIVENT [Concomitant]
     Indication: BRONCHITIS CHRONIC
     Route: 055

REACTIONS (3)
  - DYSPNOEA [None]
  - PRODUCT QUALITY ISSUE [None]
  - PRODUCTIVE COUGH [None]
